FAERS Safety Report 6407950-5 (Version None)
Quarter: 2009Q4

REPORT INFORMATION
  Report Type: 
  Country: None (occurrence: None)
  Receive Date: 20091015
  Receipt Date: 20090530
  Transmission Date: 20100525
  Serious: Yes (Death, Life-Threatening)
  Sender: FDA-Public Use
  Company Number: WAES 0905USA03840

PATIENT
  Age: 55 Year
  Sex: Female

DRUGS (26)
  1. CAP APREPITANT [Suspect]
     Indication: PROPHYLAXIS OF NAUSEA AND VOMITING
     Dosage: 125 MG/1X PO, 80 MG/1X PO
     Route: 048
     Dates: start: 20090519, end: 20090519
  2. CAP APREPITANT [Suspect]
     Indication: PROPHYLAXIS OF NAUSEA AND VOMITING
     Dosage: 125 MG/1X PO, 80 MG/1X PO
     Route: 048
     Dates: start: 20090520, end: 20090521
  3. ONDANSETRON HCL [Suspect]
     Indication: PROPHYLAXIS OF NAUSEA AND VOMITING
     Dosage: 50 ML/1X IV
     Route: 042
     Dates: start: 20090519, end: 20090519
  4. PLACEBO (UNSPECIFIED) [Suspect]
     Indication: PROPHYLAXIS OF NAUSEA AND VOMITING
     Dosage: IV
     Route: 042
     Dates: start: 20090519, end: 20090519
  5. DEXAMETHASONE [Suspect]
     Indication: PROPHYLAXIS OF NAUSEA AND VOMITING
     Dosage: 8 MG/AM PO
     Route: 048
     Dates: start: 20090520, end: 20090520
  6. DEXAMETHASONE [Suspect]
     Indication: PROPHYLAXIS OF NAUSEA AND VOMITING
     Dosage: 8 MG/AM PO
     Route: 048
     Dates: start: 20090521, end: 20090522
  7. TAB PLACEBO (UNSPECIFIED) [Suspect]
     Indication: PROPHYLAXIS OF NAUSEA AND VOMITING
     Dosage: PO
     Route: 048
     Dates: start: 20090521, end: 20090522
  8. ISOLYTE M IN DEXTROSE [Concomitant]
  9. KESOL (POTASSIUM CHLORIDE) [Concomitant]
  10. MAGNESIUM SULFATE [Concomitant]
  11. OCID DSR [Concomitant]
  12. PROXYVON [Concomitant]
  13. SHELCAL [Concomitant]
  14. SUPRADYN [Concomitant]
  15. ACETAMINOPHEN [Concomitant]
  16. ALBUMIN (HUMAN) [Concomitant]
  17. CISPLATIN [Concomitant]
  18. DEXAMETHASONE [Concomitant]
  19. DEXTROSE 5% AND SODIUM CHLORIDE 0.45% IN PLASTIC CONTAINER [Concomitant]
  20. ELECTROLYTES (UNSPECIFIED) (+) SODIUM LA [Concomitant]
  21. FUROSEMIDE [Concomitant]
  22. MANNITOL [Concomitant]
  23. PACLITAXEL [Concomitant]
  24. PANTOPRAZOLE SODIUM [Concomitant]
  25. RANITIDINE [Concomitant]
  26. SODIUM CHLORIDE [Concomitant]

REACTIONS (11)
  - ASTHENIA [None]
  - BLOOD PRESSURE DIASTOLIC DECREASED [None]
  - CONSTIPATION [None]
  - HAEMATOCRIT DECREASED [None]
  - HAEMOGLOBIN DECREASED [None]
  - INTESTINAL OBSTRUCTION [None]
  - LYMPHOCYTE PERCENTAGE DECREASED [None]
  - NEUTROPENIA [None]
  - OXYGEN SATURATION DECREASED [None]
  - SEPSIS [None]
  - VOMITING [None]
